FAERS Safety Report 17734598 (Version 19)
Quarter: 2021Q1

REPORT INFORMATION
  Report Type: Report from Study
  Country: US (occurrence: US)
  Receive Date: 20200501
  Receipt Date: 20210105
  Transmission Date: 20210419
  Serious: Yes (Hospitalization, Other)
  Sender: FDA-Public Use
  Company Number: US-GILEAD-2020-0457476

PATIENT
  Age: 61 Year
  Sex: Male
  Weight: 84.81 kg

DRUGS (25)
  1. BUMEX [Concomitant]
     Active Substance: BUMETANIDE
  2. VITAMINS NOS [Concomitant]
     Active Substance: VITAMINS
  3. IRON [Concomitant]
     Active Substance: IRON
  4. MUCINEX [Concomitant]
     Active Substance: GUAIFENESIN
  5. LEVOTHYROXINE. [Concomitant]
     Active Substance: LEVOTHYROXINE
  6. OXYGEN. [Concomitant]
     Active Substance: OXYGEN
  7. OXYCODONE [Concomitant]
     Active Substance: OXYCODONE
  8. ADCIRCA [Concomitant]
     Active Substance: TADALAFIL
  9. AMBRISENTAN [Suspect]
     Active Substance: AMBRISENTAN
     Indication: PULMONARY HYPERTENSION
  10. UPTRAVI [Suspect]
     Active Substance: SELEXIPAG
     Indication: PRODUCT USED FOR UNKNOWN INDICATION
     Dosage: 600 MCG, BID
     Route: 065
     Dates: start: 202010, end: 202010
  11. XARELTO [Concomitant]
     Active Substance: RIVAROXABAN
  12. DIGOX [ACETYLDIGOXIN] [Concomitant]
     Active Substance: .ALPHA.-ACETYLDIGOXIN
  13. SILDENAFIL. [Concomitant]
     Active Substance: SILDENAFIL
  14. SPIRONOLACTONE. [Concomitant]
     Active Substance: SPIRONOLACTONE
  15. ACETAMINOPHEN. [Concomitant]
     Active Substance: ACETAMINOPHEN
  16. BUMETANIDE. [Concomitant]
     Active Substance: BUMETANIDE
  17. AMBRISENTAN [Suspect]
     Active Substance: AMBRISENTAN
     Indication: PULMONARY ARTERIAL HYPERTENSION
     Dosage: 10 MG, QD
     Route: 048
     Dates: start: 20190719
  18. UPTRAVI [Suspect]
     Active Substance: SELEXIPAG
     Dosage: 400 MCG, BID
     Route: 065
     Dates: start: 20201025
  19. ADVAIR HFA [Concomitant]
     Active Substance: FLUTICASONE PROPIONATE\SALMETEROL XINAFOATE
  20. ORENITRAM [Suspect]
     Active Substance: TREPROSTINIL
     Indication: PRODUCT USED FOR UNKNOWN INDICATION
     Dosage: 1.75 MG, TID
     Route: 065
     Dates: end: 202010
  21. REMODULIN [Suspect]
     Active Substance: TREPROSTINIL
     Indication: PRODUCT USED FOR UNKNOWN INDICATION
     Dosage: UNK
     Route: 042
  22. REMODULIN [Suspect]
     Active Substance: TREPROSTINIL
     Dosage: 87 NG/KG/MIN
     Route: 042
     Dates: start: 202011
  23. DIGOXIN. [Concomitant]
     Active Substance: DIGOXIN
  24. TAMSULOSIN [Concomitant]
     Active Substance: TAMSULOSIN
  25. VENTOLIN HFA [Concomitant]
     Active Substance: ALBUTEROL SULFATE

REACTIONS (42)
  - Diet noncompliance [Not Recovered/Not Resolved]
  - Dysphonia [Not Recovered/Not Resolved]
  - Erythropsia [Unknown]
  - Diarrhoea [Not Recovered/Not Resolved]
  - Diabetes mellitus [Not Recovered/Not Resolved]
  - Pulmonary hypertension [Not Recovered/Not Resolved]
  - Oxygen saturation decreased [Not Recovered/Not Resolved]
  - Haemoglobin decreased [Unknown]
  - Mental disorder [Unknown]
  - Oropharyngeal pain [Not Recovered/Not Resolved]
  - Aphonia [Not Recovered/Not Resolved]
  - Oxygen consumption increased [Not Recovered/Not Resolved]
  - Cellulitis [Unknown]
  - Disease progression [Not Recovered/Not Resolved]
  - Pericardial effusion [Not Recovered/Not Resolved]
  - Fatigue [Unknown]
  - Swelling [Unknown]
  - Cough [Not Recovered/Not Resolved]
  - Internal haemorrhage [Unknown]
  - Peripheral swelling [Not Recovered/Not Resolved]
  - Orthopnoea [Not Recovered/Not Resolved]
  - Oral dysaesthesia [Recovered/Resolved]
  - Fatigue [Recovered/Resolved]
  - Chest discomfort [Unknown]
  - Hypersensitivity [Unknown]
  - Intentional product use issue [Unknown]
  - Anxiety [Unknown]
  - Chest pain [Unknown]
  - Feeling hot [Not Recovered/Not Resolved]
  - Dyspnoea [Not Recovered/Not Resolved]
  - Weight increased [Unknown]
  - Malaise [Not Recovered/Not Resolved]
  - Dyspnoea exertional [Not Recovered/Not Resolved]
  - Dizziness [Recovering/Resolving]
  - Myalgia [Unknown]
  - Nausea [Not Recovered/Not Resolved]
  - Flushing [Not Recovered/Not Resolved]
  - Taste disorder [Recovered/Resolved]
  - Muscle spasms [Not Recovered/Not Resolved]
  - Ear discomfort [Not Recovered/Not Resolved]
  - Headache [Recovered/Resolved]
  - Headache [Not Recovered/Not Resolved]

NARRATIVE: CASE EVENT DATE: 201910
